FAERS Safety Report 7155584 (Version 6)
Quarter: 2014Q2

REPORT INFORMATION
  Report Type: Spontaneous
  Country: US (occurrence: US)
  Receive Date: 20091022
  Receipt Date: 20140623
  Transmission Date: 20141212
  Serious: Yes (Hospitalization, Other)
  Sender: FDA-Public Use
  Company Number: US-ROCHE-644040

PATIENT
  Age: 26 Year
  Sex: Male
  Weight: 72.6 kg

DRUGS (6)
  1. ACCUTANE [Suspect]
     Indication: ACNE
     Route: 048
     Dates: start: 20050428, end: 20050630
  2. ACCUTANE [Suspect]
     Route: 048
  3. ACCUTANE [Suspect]
     Route: 048
  4. ACCUTANE [Suspect]
     Route: 048
  5. ACCUTANE [Suspect]
     Dosage: DOSING AMOUNT ALERED BETWEEN 40 MG DAILY TO 40 MG TWICE DAILY
     Route: 048
     Dates: start: 20051222, end: 20060705
  6. CLARAVIS [Suspect]
     Indication: ACNE
     Route: 048
     Dates: start: 20050428, end: 20050528

REACTIONS (12)
  - Crohn^s disease [Unknown]
  - Colitis ulcerative [Unknown]
  - Inflammatory bowel disease [Unknown]
  - Deep vein thrombosis [Unknown]
  - Intestinal haemorrhage [Unknown]
  - Large intestine polyp [Unknown]
  - Blood triglycerides increased [Recovered/Resolved]
  - Blood cholesterol increased [Unknown]
  - Chapped lips [Unknown]
  - Platelet count increased [Recovered/Resolved]
  - Aphthous stomatitis [Unknown]
  - Dry skin [Unknown]
